FAERS Safety Report 16178351 (Version 4)
Quarter: 2025Q3

REPORT INFORMATION
  Report Type: Spontaneous
  Country: EU (occurrence: EU)
  Receive Date: 20190410
  Receipt Date: 20250724
  Transmission Date: 20251020
  Serious: Yes (Hospitalization, Disabling, Other)
  Sender: AUROBINDO
  Company Number: EU-AUROBINDO-AUR-APL-2019-018894

PATIENT
  Age: 56 Year
  Sex: Male

DRUGS (7)
  1. RISPERIDONE [Suspect]
     Active Substance: RISPERIDONE
     Indication: Agitation
     Dosage: 6 MILLIGRAM, ONCE A DAY
     Route: 065
  2. LITHIUM CARBONATE [Suspect]
     Active Substance: LITHIUM CARBONATE
     Indication: Mania
     Dosage: 1200 MILLIGRAM, ONCE A DAY
     Route: 065
  3. QUETIAPINE [Concomitant]
     Active Substance: QUETIAPINE
     Indication: Mania
     Dosage: 600 MILLIGRAM, ONCE A DAY
     Route: 065
  4. QUETIAPINE [Concomitant]
     Active Substance: QUETIAPINE
     Indication: Agitation
     Dosage: 1000 MILLIGRAM, ONCE A DAY
     Route: 065
  5. CLONAZEPAM [Concomitant]
     Active Substance: CLONAZEPAM
     Indication: Mania
     Dosage: 2 MILLIGRAM, ONCE A DAY
     Route: 065
  6. CLONAZEPAM [Concomitant]
     Active Substance: CLONAZEPAM
     Dosage: 6 MILLIGRAM, ONCE A DAY
     Route: 065
  7. CARBAMAZEPINE [Concomitant]
     Active Substance: CARBAMAZEPINE
     Indication: Mania
     Dosage: 600 MILLIGRAM, ONCE A DAY
     Route: 065

REACTIONS (18)
  - Myoclonus [Unknown]
  - Altered state of consciousness [Recovered/Resolved]
  - Hallucination, visual [Unknown]
  - Status epilepticus [Unknown]
  - Dementia [Recovered/Resolved]
  - Amnesia [Recovering/Resolving]
  - Disturbance in attention [Recovering/Resolving]
  - Dysarthria [Unknown]
  - Dysphagia [Unknown]
  - Ataxia [Unknown]
  - Pulmonary embolism [Unknown]
  - Disorientation [Recovered/Resolved]
  - Encephalopathy [Recovered/Resolved]
  - Neurotoxicity [Recovered/Resolved]
  - Psychomotor hyperactivity [Unknown]
  - Anal incontinence [Unknown]
  - Cognitive disorder [Recovered/Resolved]
  - Delirium [Recovering/Resolving]
